FAERS Safety Report 5739640-6 (Version None)
Quarter: 2008Q2

REPORT INFORMATION
  Report Type: 
  Country: None (occurrence: None)
  Receive Date: 20080513
  Receipt Date: 20080501
  Transmission Date: 20081010
  Serious: Yes (Disabling)
  Sender: FDA-Public Use
  Company Number: GXKR2008GB04136

PATIENT
  Age: 48 Year
  Sex: Female
  Weight: 47 kg

DRUGS (4)
  1. SIMVASTATIN [Suspect]
     Indication: HYPERLIPIDAEMIA
     Dosage: 20 MG, ORAL
     Route: 048
     Dates: start: 20080125, end: 20080410
  2. PERINDOPRIL ERBUMINE [Concomitant]
  3. BUDESONIDE W/FORMOTEROL FUMARATE (BUDESONIDE, FORMOTEROL FUMARATE) [Concomitant]
  4. SALBUTAMOL (SALBUTAMOL) [Concomitant]

REACTIONS (2)
  - ASTHMA [None]
  - EXERCISE TOLERANCE DECREASED [None]
